FAERS Safety Report 8720138 (Version 2)
Quarter: 2012Q4

REPORT INFORMATION
  Report Type: Report from Study
  Country: US (occurrence: US)
  Receive Date: 20120813
  Receipt Date: 20120910
  Transmission Date: 20130627
  Serious: Yes (Hospitalization, Other)
  Sender: FDA-Public Use
  Company Number: US-ASTRAZENECA-2012SE56354

PATIENT
  Age: 23081 Day
  Sex: Female

DRUGS (10)
  1. FOSTAMATINIB DISODIUM [Suspect]
     Indication: RHEUMATOID ARTHRITIS
     Dosage: FOR STUDY D4300C00004
     Route: 048
     Dates: start: 20111117, end: 20120503
  2. FOSTAMATINIB DISODIUM [Suspect]
     Indication: RHEUMATOID ARTHRITIS
     Route: 048
     Dates: start: 20120503
  3. ATENOLOL [Suspect]
     Indication: HYPERTENSION
     Route: 048
  4. AMLODIPINE [Suspect]
     Indication: HYPERTENSION
     Route: 048
  5. CELECOXIB [Concomitant]
     Indication: RHEUMATOID ARTHRITIS
     Route: 048
  6. CITALOPRAM [Concomitant]
     Indication: DEPRESSION
     Route: 048
  7. EZETIMIBE/SIMVASTATIN [Concomitant]
     Indication: HYPERCHOLESTEROLAEMIA
     Dosage: DAILY
     Route: 048
  8. PANTOPRAZOLE [Concomitant]
     Indication: GASTROOESOPHAGEAL REFLUX DISEASE
     Route: 048
  9. CYCLOSPORINE OPHTHALMIC [Concomitant]
     Indication: SJOGREN^S SYNDROME
     Route: 047
  10. MOMETASONE FUROATE NASAL INHALER/SPRAY [Concomitant]
     Indication: SEASONAL ALLERGY
     Route: 045

REACTIONS (1)
  - Bradycardia [Recovered/Resolved]
